FAERS Safety Report 8869169 (Version 1)
Quarter: 2012Q4

REPORT INFORMATION
  Report Type: Spontaneous
  Country: US (occurrence: None)
  Receive Date: 20121024
  Receipt Date: 20121024
  Transmission Date: 20130627
  Serious: Yes (Other)
  Sender: FDA-Public Use
  Company Number: 1454519

PATIENT
  Age: 66 Year
  Sex: Male

DRUGS (6)
  1. CALCIUM FOLINATE [Suspect]
  2. IRINOTECAN HYDROCHLORIDE [Suspect]
  3. FLUOROURACIL [Suspect]
  4. ELOXATIN [Suspect]
     Route: 042
     Dates: start: 20070222, end: 20070919
  5. ONDANSETRON [Concomitant]
  6. DEXAMETHASONE [Concomitant]

REACTIONS (5)
  - Upper respiratory tract infection [None]
  - Lethargy [None]
  - Peripheral sensory neuropathy [None]
  - Neuropathy peripheral [None]
  - Epistaxis [None]
